FAERS Safety Report 21577415 (Version 3)
Quarter: 2022Q4

REPORT INFORMATION
  Report Type: Report from Study
  Country: US (occurrence: US)
  Receive Date: 20221110
  Receipt Date: 20221205
  Transmission Date: 20230112
  Serious: Yes (Other)
  Sender: FDA-Public Use
  Company Number: US-BRISTOL-MYERS SQUIBB COMPANY-2022-135094

PATIENT
  Age: 69 Year
  Sex: Female

DRUGS (5)
  1. OPDIVO [Suspect]
     Active Substance: NIVOLUMAB
     Indication: Renal cell carcinoma
     Route: 042
     Dates: start: 20221024
  2. HYDROCORTISONE [Concomitant]
     Active Substance: HYDROCORTISONE
     Indication: Product used for unknown indication
     Dosage: TOOK 2 TABLETS IN THE MORNING AND 1 TABLET IN THE AFTERNOON WITH LUNCH, WAS NOT SURE IF THE DOSAGE W
     Route: 065
  3. HYDROCORTISONE [Concomitant]
     Active Substance: HYDROCORTISONE
     Dosage: 5 MG 2 TABLETS IN AM AND 2 TABLETS IN THE AFTERNOON
     Route: 065
     Dates: start: 20221114
  4. GLIMEPIRIDE [Concomitant]
     Active Substance: GLIMEPIRIDE
     Indication: Product used for unknown indication
     Route: 048
  5. CORTISONE [Concomitant]
     Active Substance: CORTISONE
     Indication: Rash
     Dosage: 10 CREAM
     Route: 065
     Dates: start: 20221025

REACTIONS (12)
  - Nausea [Recovering/Resolving]
  - Decreased appetite [Recovering/Resolving]
  - Headache [Recovering/Resolving]
  - Pain [Recovered/Resolved]
  - Fatigue [Recovering/Resolving]
  - Cortisol decreased [Unknown]
  - Hypotension [Recovering/Resolving]
  - Feeling cold [Recovering/Resolving]
  - Dizziness [Recovering/Resolving]
  - Blood potassium decreased [Unknown]
  - Adrenal insufficiency [Unknown]
  - Retching [Unknown]

NARRATIVE: CASE EVENT DATE: 20221024
